FAERS Safety Report 24010581 (Version 1)
Quarter: 2024Q2

REPORT INFORMATION
  Report Type: Spontaneous
  Country: CA (occurrence: None)
  Receive Date: 20240625
  Receipt Date: 20240625
  Transmission Date: 20240716
  Serious: Yes (Other)
  Sender: FDA-Public Use
  Company Number: 2024A141486

PATIENT
  Age: 71 Year
  Sex: Female

DRUGS (4)
  1. SYMBICORT [Suspect]
     Active Substance: BUDESONIDE\FORMOTEROL FUMARATE DIHYDRATE
     Route: 055
  2. JARDIANCE [Suspect]
     Active Substance: EMPAGLIFLOZIN
  3. PANTOPRAZOLE [Suspect]
     Active Substance: PANTOPRAZOLE
  4. TYLENOL [Suspect]
     Active Substance: ACETAMINOPHEN

REACTIONS (5)
  - Dyspnoea [Unknown]
  - Flushing [Unknown]
  - Angioedema [Unknown]
  - Pruritus [Unknown]
  - Rash erythematous [Unknown]
